FAERS Safety Report 9164804 (Version 2)
Quarter: 2013Q1

REPORT INFORMATION
  Report Type: Spontaneous
  Country: US (occurrence: None)
  Receive Date: 20130226
  Receipt Date: 20130304
  Transmission Date: 20140127
  Serious: Yes (Hospitalization)
  Sender: FDA-Public Use
  Company Number: 1603987

PATIENT
  Age: 58 Year
  Sex: Male

DRUGS (7)
  1. VANCOMYCIN HYDROCHLORIDE [Suspect]
     Indication: OSTEOMYELITIS
     Route: 050
  2. VANCOMYCIN HYDROCHLORIDE [Suspect]
     Indication: ARTHRITIS BACTERIAL
     Route: 050
  3. OPIOIDS [Suspect]
  4. TOBRAMYCIN [Concomitant]
  5. VANCOMYCIN [Concomitant]
  6. HEPARIN [Concomitant]
  7. ANTIEMETICS AND ANTINAUSEANTS [Concomitant]

REACTIONS (4)
  - Haematuria [None]
  - Tubulointerstitial nephritis [None]
  - Renal failure acute [None]
  - Rash maculo-papular [None]
